FAERS Safety Report 8517859-9 (Version None)
Quarter: 2012Q3

REPORT INFORMATION
  Report Type: 
  Country: None (occurrence: None)
  Receive Date: 20120718
  Receipt Date: 20110622
  Transmission Date: 20120928
  Serious: No
  Sender: FDA-Public Use
  Company Number: US-BRISTOL-MYERS SQUIBB COMPANY-15848740

PATIENT
  Age: 53 Year
  Sex: Female

DRUGS (3)
  1. HEPARIN SODIUM [Concomitant]
  2. COUMADIN [Suspect]
     Indication: PULMONARY EMBOLISM
     Dosage: 5MG AND 6MG, BUT MOSTLY 6 MG
     Dates: start: 20101001, end: 20110523
  3. RESTASIS [Concomitant]

REACTIONS (4)
  - DRY SKIN [None]
  - RASH [None]
  - TRICHORRHEXIS [None]
  - PRURITUS [None]
